FAERS Safety Report 4340586-9 (Version None)
Quarter: 2004Q2

REPORT INFORMATION
  Report Type: 
  Country: None (occurrence: None)
  Receive Date: 20040416
  Receipt Date: 20040416
  Transmission Date: 20050107
  Serious: Yes (Hospitalization)
  Sender: FDA-Public Use
  Company Number: None

PATIENT
  Age: 81 Year
  Sex: Male

DRUGS (8)
  1. INDOMETHACIN [Suspect]
     Indication: ARTHRITIS
     Dates: end: 20030928
  2. ALLOPURINOL [Suspect]
     Indication: GOUT
     Dosage: 300 MG PO QD
     Route: 048
     Dates: end: 20031001
  3. LASIX [Concomitant]
  4. COZAAR [Concomitant]
  5. PRILOSEC [Concomitant]
  6. FLEXERIL [Concomitant]
  7. ALDACTONE [Concomitant]
  8. PREDNISONE [Concomitant]

REACTIONS (1)
  - RASH ERYTHEMATOUS [None]
